FAERS Safety Report 6841183-3 (Version None)
Quarter: 2010Q3

REPORT INFORMATION
  Report Type: 
  Country: None (occurrence: None)
  Receive Date: 20100714
  Receipt Date: 20070703
  Transmission Date: 20110219
  Serious: Yes (Other)
  Sender: FDA-Public Use
  Company Number: US-PFIZER INC-2007054601

PATIENT
  Sex: Female
  Weight: 47.727 kg

DRUGS (8)
  1. CHANTIX [Suspect]
     Indication: SMOKING CESSATION THERAPY
     Dates: start: 20070625
  2. LOVASTATIN [Concomitant]
  3. LISINOPRIL [Concomitant]
  4. VITAMIN E [Concomitant]
  5. FISH OIL [Concomitant]
  6. MULTI-VITAMINS [Concomitant]
  7. ACETYLSALICYLIC ACID [Concomitant]
  8. INSULIN [Concomitant]

REACTIONS (3)
  - BLOOD GLUCOSE INCREASED [None]
  - DIZZINESS [None]
  - LETHARGY [None]
